FAERS Safety Report 21310988 (Version 1)
Quarter: 2022Q3

REPORT INFORMATION
  Report Type: Spontaneous
  Country: US (occurrence: None)
  Receive Date: 20220909
  Receipt Date: 20220909
  Transmission Date: 20221027
  Serious: No
  Sender: FDA-Public Use
  Company Number: US-ARIS GLOBAL-202112-2329

PATIENT
  Age: 82 Year
  Sex: Male

DRUGS (2)
  1. OXERVATE [Suspect]
     Active Substance: CENEGERMIN-BKBJ
     Indication: Neurotrophic keratopathy
     Route: 047
     Dates: start: 20211213
  2. REFRESH TEARS [Concomitant]
     Active Substance: CARBOXYMETHYLCELLULOSE SODIUM
     Indication: Dry eye
     Dosage: 2/3 TIMES DAILY
     Dates: start: 20211223

REACTIONS (2)
  - Ocular hyperaemia [Recovered/Resolved]
  - Superficial injury of eye [Recovered/Resolved]

NARRATIVE: CASE EVENT DATE: 20211220
